FAERS Safety Report 6584627-7 (Version None)
Quarter: 2010Q1

REPORT INFORMATION
  Report Type: 
  Country: None (occurrence: None)
  Receive Date: 20100213
  Receipt Date: 20100213
  Transmission Date: 20100710
  Serious: Yes (Life-Threatening, Hospitalization, Disabling)
  Sender: FDA-Public Use
  Company Number: None

PATIENT
  Age: 58 Year
  Sex: Male
  Weight: 97.5234 kg

DRUGS (1)
  1. ICY HOT EXTRA STRENGTH MEDICATE EXTRA STRENGTH CHATTEM [Suspect]
     Indication: MUSCLE SPASMS
     Dosage: 2/PATCHES ONE TIME TOP, APPLIED FOR 2 HOURS
     Route: 061
     Dates: start: 20100130, end: 20100130

REACTIONS (1)
  - DRUG HYPERSENSITIVITY [None]
